FAERS Safety Report 12177876 (Version 2)
Quarter: 2016Q1

REPORT INFORMATION
  Report Type: Spontaneous
  Country: US (occurrence: US)
  Receive Date: 20160314
  Receipt Date: 20160317
  Transmission Date: 20160526
  Serious: Yes (Other)
  Sender: FDA-Public Use
  Company Number: US-BAYER-2016-047737

PATIENT
  Age: 15 Year
  Sex: Female

DRUGS (2)
  1. CORICIDIN HBP COUGH AND COLD [Suspect]
     Active Substance: CHLORPHENIRAMINE MALEATE\DEXTROMETHORPHAN HYDROBROMIDE
     Indication: NASOPHARYNGITIS
     Dosage: ADULTS AND CHILDREN 12 YRS AND OLDER: 1 TABLET EVERY 6 HOURS
  2. CORICIDIN HBP COUGH AND COLD [Suspect]
     Active Substance: CHLORPHENIRAMINE MALEATE\DEXTROMETHORPHAN HYDROBROMIDE
     Indication: NASOPHARYNGITIS
     Dosage: CHILD TOOK 16-20 TABLETS
     Dates: start: 20160308, end: 20160308

REACTIONS (4)
  - Drug abuse [Recovered/Resolved]
  - Dysarthria [Recovered/Resolved]
  - Agitation [None]
  - Eye disorder [None]

NARRATIVE: CASE EVENT DATE: 20160308
